FAERS Safety Report 11124846 (Version 5)
Quarter: 2017Q1

REPORT INFORMATION
  Report Type: Spontaneous
  Country: US (occurrence: US)
  Receive Date: 20150520
  Receipt Date: 20170113
  Transmission Date: 20170428
  Serious: Yes (Other)
  Sender: FDA-Public Use
  Company Number: US-PFIZER INC-2015165031

PATIENT
  Age: 46 Year
  Sex: Female
  Weight: 95 kg

DRUGS (2)
  1. LYRICA [Suspect]
     Active Substance: PREGABALIN
     Indication: FIBROMYALGIA
     Dosage: 100 MG, 3X/DAY
     Route: 048
     Dates: end: 20150508
  2. LYRICA [Suspect]
     Active Substance: PREGABALIN
     Indication: NERVE INJURY
     Dosage: 50 MG, 2X/DAY
     Route: 048
     Dates: start: 2001

REACTIONS (8)
  - Withdrawal syndrome [Unknown]
  - Pruritus [Unknown]
  - Mobility decreased [Recovered/Resolved]
  - Pain [Unknown]
  - Feeling abnormal [Unknown]
  - Back pain [Unknown]
  - Eating disorder [Unknown]
  - Hypoaesthesia [Unknown]

NARRATIVE: CASE EVENT DATE: 2013
